FAERS Safety Report 9765932 (Version 1)
Quarter: 2013Q4

REPORT INFORMATION
  Report Type: Spontaneous
  Country: US (occurrence: US)
  Receive Date: 20131217
  Receipt Date: 20131217
  Transmission Date: 20140711
  Serious: No
  Sender: FDA-Public Use
  Company Number: US-GLAXOSMITHKLINE-A1014219A

PATIENT
  Age: 68 Year
  Sex: Female

DRUGS (9)
  1. VOTRIENT [Suspect]
     Indication: OVARIAN CANCER
     Dosage: 600MG PER DAY
     Route: 048
     Dates: start: 20121220
  2. EFFEXOR [Concomitant]
  3. COMPAZINE [Concomitant]
  4. HYCAMTIN [Concomitant]
  5. COUMADIN [Concomitant]
  6. GABAPENTIN [Concomitant]
  7. SYNTHROID [Concomitant]
  8. LOSARTAN [Concomitant]
  9. CELEBREX [Concomitant]

REACTIONS (1)
  - Migraine [Recovered/Resolved]
